FAERS Safety Report 13525186 (Version 1)
Quarter: 2017Q2

REPORT INFORMATION
  Report Type: Spontaneous
  Country: US (occurrence: US)
  Receive Date: 20170508
  Receipt Date: 20170508
  Transmission Date: 20170830
  Serious: No
  Sender: FDA-Public Use
  Company Number: US-ROCHE-1005288

PATIENT
  Age: 50 Year
  Sex: Male
  Weight: 86.26 kg

DRUGS (4)
  1. AVASTIN [Suspect]
     Active Substance: BEVACIZUMAB
     Indication: COLORECTAL CANCER METASTATIC
     Route: 042
  2. IRINOTECAN [Concomitant]
     Active Substance: IRINOTECAN
  3. FLUOROURACIL. [Concomitant]
     Active Substance: FLUOROURACIL
  4. FOLINIC ACID [Concomitant]
     Active Substance: LEUCOVORIN

REACTIONS (3)
  - Road traffic accident [Unknown]
  - Disturbance in attention [Unknown]
  - Mental status changes [Not Recovered/Not Resolved]

NARRATIVE: CASE EVENT DATE: 20111006
